FAERS Safety Report 14267581 (Version 1)
Quarter: 2017Q4

REPORT INFORMATION
  Report Type: Spontaneous
  Country: US (occurrence: US)
  Receive Date: 20171211
  Receipt Date: 20171211
  Transmission Date: 20180321
  Serious: No
  Sender: FDA-Public Use
  Company Number: US-AUROBINDO-AUR-APU-2017-42290

PATIENT
  Sex: Female

DRUGS (1)
  1. MIRTAZAPINE 7.5MG [Suspect]
     Active Substance: MIRTAZAPINE
     Indication: PRODUCT USED FOR UNKNOWN INDICATION
     Dosage: 7. MG, ONCE A DAY AT NIGHT
     Route: 065

REACTIONS (5)
  - Nervousness [Unknown]
  - Hunger [Unknown]
  - Vision blurred [Unknown]
  - Rash [Unknown]
  - Sedation [Unknown]
